FAERS Safety Report 16884382 (Version 1)
Quarter: 2019Q4

REPORT INFORMATION
  Report Type: Spontaneous
  Country: US (occurrence: US)
  Receive Date: 20191004
  Receipt Date: 20191004
  Transmission Date: 20200122
  Serious: Yes (Other)
  Sender: FDA-Public Use
  Company Number: US-MYLANLABS-2019M1091135

PATIENT
  Sex: Male
  Weight: 52 kg

DRUGS (5)
  1. TIMOLOL. [Suspect]
     Active Substance: TIMOLOL
     Indication: TACHYCARDIA
     Dosage: 5 MILLIGRAM, BID (HALF TABLET, TWICE A DAILY)
     Route: 048
  2. DIGOXIN. [Concomitant]
     Active Substance: DIGOXIN
     Dosage: HALF TABLET, QD
  3. TIMOLOL. [Suspect]
     Active Substance: TIMOLOL
     Indication: HYPERTENSION
  4. TIMOLOL. [Suspect]
     Active Substance: TIMOLOL
     Indication: HEART RATE ABNORMAL
  5. TIMOLOL. [Suspect]
     Active Substance: TIMOLOL
     Indication: MIGRAINE

REACTIONS (11)
  - Haemoptysis [Recovering/Resolving]
  - Heart rate irregular [Not Recovered/Not Resolved]
  - Gastrointestinal sounds abnormal [Unknown]
  - Lung neoplasm malignant [Unknown]
  - Respiratory tract infection fungal [Unknown]
  - Atelectasis [Unknown]
  - Heart valve incompetence [Not Recovered/Not Resolved]
  - Tachycardia [Unknown]
  - Off label use [Not Recovered/Not Resolved]
  - Chest wall tumour [Not Recovered/Not Resolved]
  - Cough [Not Recovered/Not Resolved]
